FAERS Safety Report 8278753-4 (Version None)
Quarter: 2012Q2

REPORT INFORMATION
  Report Type: 
  Country: None (occurrence: None)
  Receive Date: 20120412
  Receipt Date: 20120217
  Transmission Date: 20120825
  Serious: No
  Sender: FDA-Public Use
  Company Number: US-ASTRAZENECA-2012SE11136

PATIENT
  Sex: Male

DRUGS (1)
  1. NEXIUM [Suspect]
     Indication: GASTROOESOPHAGEAL REFLUX DISEASE
     Route: 048

REACTIONS (6)
  - DYSPNOEA [None]
  - DIZZINESS [None]
  - HYPOAESTHESIA [None]
  - OESOPHAGEAL DISORDER [None]
  - FEELING ABNORMAL [None]
  - GASTRIC ULCER [None]
